FAERS Safety Report 8925109 (Version 2)
Quarter: 2012Q4

REPORT INFORMATION
  Report Type: 
  Country: US (occurrence: US)
  Receive Date: 20121126
  Receipt Date: 20121212
  Transmission Date: 20130627
  Serious: Yes (Hospitalization)
  Sender: FDA-Public Use
  Company Number: US-BAYER-2012-121192

PATIENT
  Age: 30 Year
  Sex: Female
  Weight: 99.77 kg

DRUGS (9)
  1. YASMIN [Suspect]
     Indication: ACNE
     Dosage: UNK
     Dates: start: 200407, end: 200806
  2. YASMIN [Suspect]
     Indication: CONTRACEPTION
  3. YAZ [Suspect]
     Indication: CONTRACEPTION
     Dosage: UNK
     Dates: start: 200811, end: 200904
  4. OCELLA [Suspect]
     Indication: CONTRACEPTION
     Dosage: UNK
     Dates: start: 200807, end: 200810
  5. OCELLA [Suspect]
     Indication: CONTRACEPTION
     Dosage: UNK
     Dates: start: 200904, end: 200911
  6. IBUPROFEN [Concomitant]
     Dosage: 800 mg, UNK
  7. ACETAMINOPHEN-COD (INTERPRETED AS CODEINE) [NUMBER] 3 [Concomitant]
  8. CLINDAMYCIN HYDROCHLORIDE [Concomitant]
     Dosage: 300 mg, UNK
  9. PENICILLIN VK [Concomitant]
     Dosage: 500 mg, UNK

REACTIONS (5)
  - Cholecystitis acute [None]
  - Cholelithiasis [None]
  - Injury [None]
  - Pain [None]
  - Pain [None]
